FAERS Safety Report 24531877 (Version 1)
Quarter: 2024Q4

REPORT INFORMATION
  Report Type: Spontaneous
  Country: CN (occurrence: CN)
  Receive Date: 20241022
  Receipt Date: 20241022
  Transmission Date: 20250115
  Serious: Yes (Hospitalization)
  Sender: NOVARTIS
  Company Number: CN-002147023-NVSC2024CN200078

PATIENT
  Age: 6 Year
  Sex: Male
  Weight: 18.5 kg

DRUGS (5)
  1. TRILEPTAL [Suspect]
     Active Substance: OXCARBAZEPINE
     Indication: Epilepsy
     Dosage: 300 MG, BID (IN THE MORNING)
     Route: 048
     Dates: start: 20240906, end: 20240912
  2. TRILEPTAL [Suspect]
     Active Substance: OXCARBAZEPINE
     Dosage: 300 MG, QD
     Route: 065
     Dates: start: 20240913, end: 20240913
  3. TRILEPTAL [Suspect]
     Active Substance: OXCARBAZEPINE
     Dosage: 375 MG, QD
     Route: 065
     Dates: start: 20240913, end: 20240913
  4. LACOSAMIDE [Suspect]
     Active Substance: LACOSAMIDE
     Indication: Product used for unknown indication
     Dosage: 1.8 ML, Q12H
     Route: 065
  5. NITRAZEPAM [Suspect]
     Active Substance: NITRAZEPAM
     Indication: Product used for unknown indication
     Dosage: 2.5 MG, BID
     Route: 048

REACTIONS (5)
  - Rash morbilliform [Unknown]
  - Rash [Recovered/Resolved]
  - Pruritus [Recovered/Resolved]
  - Seizure [Unknown]
  - Drug eruption [Unknown]

NARRATIVE: CASE EVENT DATE: 20240913
